FAERS Safety Report 6616984-7 (Version None)
Quarter: 2010Q1

REPORT INFORMATION
  Report Type: 
  Country: None (occurrence: None)
  Receive Date: 20100302
  Receipt Date: 20100222
  Transmission Date: 20100710
  Serious: Yes (Death)
  Sender: FDA-Public Use
  Company Number: 2010JP001086

PATIENT
  Age: 20 Year
  Sex: Female

DRUGS (6)
  1. PROGRAF [Suspect]
     Indication: ALLOGENIC BONE MARROW TRANSPLANTATION THERAPY
  2. CYCLOPHOSPHAMIDE [Concomitant]
  3. CYCLOSPORINE [Concomitant]
  4. METHOTREXATE [Concomitant]
  5. STEROID [Concomitant]
  6. METHYLPREDNISOLONE [Concomitant]

REACTIONS (3)
  - ASPERGILLOMA [None]
  - PNEUMONIA BACTERIAL [None]
  - SEPSIS [None]
